FAERS Safety Report 8064054-6 (Version None)
Quarter: 2012Q1

REPORT INFORMATION
  Report Type: 
  Country: None (occurrence: None)
  Receive Date: 20120123
  Receipt Date: 20120117
  Transmission Date: 20120608
  Serious: Yes (Death, Other)
  Sender: FDA-Public Use
  Company Number: US-VERTEX PHARMACEUTICALS INC.-AE-2011-003589

PATIENT
  Sex: Female

DRUGS (11)
  1. INCIVEK [Suspect]
     Indication: HEPATITIS C
     Dates: start: 20111014, end: 20111106
  2. OMEPRAZOLE [Concomitant]
  3. RIBAVIRIN [Concomitant]
     Indication: HEPATITIS C
     Dates: start: 20111014
  4. AMLODIPINE [Concomitant]
  5. OMEPRAZOLE [Concomitant]
  6. FLUOXETINE [Concomitant]
  7. INTERFERON [Concomitant]
     Indication: HEPATITIS C
     Dates: start: 20111014
  8. TERIPARATIDE [Concomitant]
  9. ADALIMUMAB [Concomitant]
  10. METFORMIN HYDROCHLORIDE [Concomitant]
  11. GLYBURIDE [Concomitant]

REACTIONS (3)
  - METABOLIC ACIDOSIS [None]
  - ANAEMIA [None]
  - MYOCARDIAL INFARCTION [None]
